FAERS Safety Report 7176267-6 (Version None)
Quarter: 2010Q4

REPORT INFORMATION
  Report Type: 
  Country: None (occurrence: None)
  Receive Date: 20101207
  Receipt Date: 20101203
  Transmission Date: 20110411
  Serious: Yes (Death)
  Sender: FDA-Public Use
  Company Number: GRT 2010-16333

PATIENT
  Age: 76 Year
  Sex: Female

DRUGS (1)
  1. LIDODERM [Suspect]
     Dates: start: 20090716

REACTIONS (3)
  - BREAST CANCER [None]
  - LEUKAEMIA [None]
  - MALIGNANT NEOPLASM PROGRESSION [None]
